FAERS Safety Report 23855741 (Version 1)
Quarter: 2024Q2

REPORT INFORMATION
  Report Type: Report from Study
  Country: US (occurrence: US)
  Receive Date: 20240514
  Receipt Date: 20240514
  Transmission Date: 20240716
  Serious: Yes (Hospitalization)
  Sender: FDA-Public Use
  Company Number: US-BIOGEN-2024BI01264533

PATIENT
  Sex: Male

DRUGS (1)
  1. SKYCLARYS [Suspect]
     Active Substance: OMAVELOXOLONE
     Indication: Friedreich^s ataxia
     Route: 050
     Dates: start: 20240122

REACTIONS (5)
  - Respiratory disorder [Unknown]
  - Muscle spasms [Unknown]
  - Accident [Recovered/Resolved]
  - Pain [Unknown]
  - Peripheral swelling [Unknown]
